FAERS Safety Report 12180858 (Version 1)
Quarter: 2016Q1

REPORT INFORMATION
  Report Type: Spontaneous
  Country: NO (occurrence: NO)
  Receive Date: 20160315
  Receipt Date: 20160315
  Transmission Date: 20160526
  Serious: Yes (Life-Threatening, Hospitalization)
  Sender: FDA-Public Use
  Company Number: NO-FRESENIUS KABI-FK201601282

PATIENT
  Age: 56 Year
  Sex: Male

DRUGS (9)
  1. VANCOMYCIN (MANUFACTURER UNKNOWN) [Suspect]
     Active Substance: VANCOMYCIN
     Indication: ENDOCARDITIS
     Route: 065
     Dates: start: 20150923, end: 20151101
  2. RIFAMPICIN [Suspect]
     Active Substance: RIFAMPIN
     Route: 065
  3. LINEZOLID (MANUFACTURER UNKNOWN) [Suspect]
     Active Substance: LINEZOLID
     Indication: ENDOCARDITIS
     Route: 065
     Dates: end: 20151112
  4. RIFAMPICIN [Suspect]
     Active Substance: RIFAMPIN
     Indication: ENDOCARDITIS
     Route: 065
     Dates: start: 20150923, end: 20151015
  5. ALBYL-E [Concomitant]
     Active Substance: ASPIRIN\MAGNESIUM OXIDE
     Indication: PRODUCT USED FOR UNKNOWN INDICATION
     Route: 065
  6. MAREVAN [Concomitant]
     Active Substance: WARFARIN SODIUM
     Indication: PRODUCT USED FOR UNKNOWN INDICATION
     Route: 065
  7. TRIATEC [Concomitant]
     Active Substance: RAMIPRIL
     Indication: PRODUCT USED FOR UNKNOWN INDICATION
     Route: 065
  8. CEFOTAXIME [Suspect]
     Active Substance: CEFOTAXIME SODIUM
     Indication: PRODUCT USED FOR UNKNOWN INDICATION
     Route: 065
     Dates: start: 20151007, end: 20151015
  9. LIPITOR [Concomitant]
     Active Substance: ATORVASTATIN CALCIUM
     Indication: PRODUCT USED FOR UNKNOWN INDICATION
     Route: 065

REACTIONS (4)
  - Alanine aminotransferase increased [Recovering/Resolving]
  - Renal failure [Recovering/Resolving]
  - Skin reaction [Recovering/Resolving]
  - Eosinophilia [Recovering/Resolving]

NARRATIVE: CASE EVENT DATE: 20151009
